FAERS Safety Report 15243511 (Version 1)
Quarter: 2018Q3

REPORT INFORMATION
  Report Type: Spontaneous
  Country: US (occurrence: US)
  Receive Date: 20180712
  Receipt Date: 20180712
  Transmission Date: 20181010
  Serious: Yes (Hospitalization)
  Sender: FDA-Public Use
  Company Number: None

PATIENT
  Age: 75 Year
  Sex: Male
  Weight: 101.11 kg

DRUGS (1)
  1. AZACITIDINE. [Suspect]
     Active Substance: AZACITIDINE
     Dates: end: 20180606

REACTIONS (4)
  - Febrile neutropenia [None]
  - Rectal haemorrhage [None]
  - Pneumonia [None]
  - Asthenia [None]

NARRATIVE: CASE EVENT DATE: 20180630
